FAERS Safety Report 14574331 (Version 1)
Quarter: 2018Q1

REPORT INFORMATION
  Report Type: Report from Study
  Country: US (occurrence: US)
  Receive Date: 20180226
  Receipt Date: 20180226
  Transmission Date: 20180509
  Serious: Yes (Hospitalization, Other)
  Sender: FDA-Public Use
  Company Number: US-GILEAD-2018-0322526

PATIENT
  Age: 64 Year
  Sex: Female
  Weight: 68.2 kg

DRUGS (21)
  1. ADVAIR HFA [Concomitant]
     Active Substance: FLUTICASONE PROPIONATE\SALMETEROL XINAFOATE
  2. CELEBREX [Concomitant]
     Active Substance: CELECOXIB
  3. SOFOSBUVIR W/VELPATASVIR [Suspect]
     Active Substance: SOFOSBUVIR\VELPATASVIR
     Indication: HEPATITIS C
     Dosage: 1 DF, QD
     Route: 048
     Dates: start: 20170401, end: 20170623
  4. LYRICA [Concomitant]
     Active Substance: PREGABALIN
  5. NICOTINE TRANSDERMAL SYSTEM [Concomitant]
     Active Substance: NICOTINE
  6. AMLODIPINE [Concomitant]
     Active Substance: AMLODIPINE BESYLATE
  7. METHADONE [Concomitant]
     Active Substance: METHADONE HYDROCHLORIDE
  8. VALPROATE [Concomitant]
     Active Substance: VALPROIC ACID
  9. CLONIDINE. [Concomitant]
     Active Substance: CLONIDINE
  10. SUBOXONE [Concomitant]
     Active Substance: BUPRENORPHINE HYDROCHLORIDE\NALOXONE HYDROCHLORIDE
  11. TIZANIDINE. [Concomitant]
     Active Substance: TIZANIDINE
  12. ATIVAN [Concomitant]
     Active Substance: LORAZEPAM
  13. NARCAN [Concomitant]
     Active Substance: NALOXONE HYDROCHLORIDE
  14. CLONAZEPAM. [Concomitant]
     Active Substance: CLONAZEPAM
  15. DULOXETINE. [Concomitant]
     Active Substance: DULOXETINE
  16. SODIUM CHLORIDE. [Concomitant]
     Active Substance: SODIUM CHLORIDE
  17. PROAIR HFA [Concomitant]
     Active Substance: ALBUTEROL SULFATE
  18. GABAPENTIN. [Concomitant]
     Active Substance: GABAPENTIN
  19. ATROPINE. [Concomitant]
     Active Substance: ATROPINE
  20. DIVALPROEX [Concomitant]
     Active Substance: DIVALPROEX SODIUM
  21. DEPAKOTE [Concomitant]
     Active Substance: DIVALPROEX SODIUM

REACTIONS (1)
  - Seizure [Unknown]

NARRATIVE: CASE EVENT DATE: 20170712
